FAERS Safety Report 14577670 (Version 1)
Quarter: 2018Q1

REPORT INFORMATION
  Report Type: Spontaneous
  Country: US (occurrence: US)
  Receive Date: 20180226
  Receipt Date: 20180226
  Transmission Date: 20180509
  Serious: No
  Sender: FDA-Public Use
  Company Number: None

PATIENT
  Age: 41 Year
  Sex: Female
  Weight: 124.2 kg

DRUGS (6)
  1. IRON PILL [Concomitant]
     Active Substance: IRON
  2. TRIS HYDROCODONE/ACETAMINOPHEN 10 325 MG [Suspect]
     Active Substance: ACETAMINOPHEN\HYDROCODONE BITARTRATE
     Indication: SYSTEMIC LUPUS ERYTHEMATOSUS
     Dosage: ?          QUANTITY:90 TABLET(S);?
     Route: 048
     Dates: start: 20180223, end: 20180223
  3. TRIS HYDROCODONE/ACETAMINOPHEN 10 325 MG [Suspect]
     Active Substance: ACETAMINOPHEN\HYDROCODONE BITARTRATE
     Indication: RHEUMATOID ARTHRITIS
     Dosage: ?          QUANTITY:90 TABLET(S);?
     Route: 048
     Dates: start: 20180223, end: 20180223
  4. FISH OIL [Concomitant]
     Active Substance: FISH OIL
  5. ACIPHEX [Concomitant]
     Active Substance: RABEPRAZOLE SODIUM
  6. LINZESS [Concomitant]
     Active Substance: LINACLOTIDE

REACTIONS (3)
  - Feeling hot [None]
  - Dizziness [None]
  - Pain in extremity [None]

NARRATIVE: CASE EVENT DATE: 20180223
